FAERS Safety Report 12039934 (Version 1)
Quarter: 2016Q1

REPORT INFORMATION
  Report Type: Spontaneous
  Country: US (occurrence: US)
  Receive Date: 20160208
  Receipt Date: 20160208
  Transmission Date: 20160526
  Serious: No
  Sender: FDA-Public Use
  Company Number: US-TEVA-632143USA

PATIENT
  Age: 75 Year
  Sex: Female

DRUGS (3)
  1. XANAX [Concomitant]
     Active Substance: ALPRAZOLAM
  2. QVAR [Suspect]
     Active Substance: BECLOMETHASONE DIPROPIONATE
     Dosage: 2 PUFFS
     Route: 055
  3. PROAIR HFA [Suspect]
     Active Substance: ALBUTEROL SULFATE
     Dosage: 2 PUFFS
     Route: 055
     Dates: start: 20160201

REACTIONS (6)
  - General physical condition abnormal [Not Recovered/Not Resolved]
  - Activities of daily living impaired [Not Recovered/Not Resolved]
  - Feeling abnormal [Unknown]
  - Adverse event [Not Recovered/Not Resolved]
  - Wheezing [Unknown]
  - Tremor [Unknown]

NARRATIVE: CASE EVENT DATE: 20160201
